FAERS Safety Report 5289165-X (Version None)
Quarter: 2007Q1

REPORT INFORMATION
  Report Type: 
  Country: None (occurrence: None)
  Receive Date: 20070119
  Receipt Date: 20021023
  Transmission Date: 20070707
  Serious: Yes (Hospitalization, Other)
  Sender: FDA-Public Use
  Company Number: PHEH2002US09322

PATIENT
  Age: 2 Year
  Sex: Female
  Weight: 13.6 kg

DRUGS (1)
  1. METHERGINE [Suspect]
     Indication: MEDICATION ERROR
     Dosage: 1.2 MG, ONCE/SINGLE, ORAL
     Route: 048
     Dates: start: 20021023

REACTIONS (3)
  - ACCIDENTAL EXPOSURE [None]
  - HYPOTENSION [None]
  - LETHARGY [None]
